FAERS Safety Report 8354906-1 (Version None)
Quarter: 2012Q2

REPORT INFORMATION
  Report Type: 
  Country: None (occurrence: None)
  Receive Date: 20120511
  Receipt Date: 20120504
  Transmission Date: 20120825
  Serious: Yes (Hospitalization)
  Sender: FDA-Public Use
  Company Number: US-ABBOTT-12P-163-0932449-00

PATIENT
  Sex: Female
  Weight: 63.56 kg

DRUGS (5)
  1. ESTROPIPATE [Concomitant]
     Indication: HORMONE REPLACEMENT THERAPY
  2. LEVOTHYROXINE SODIUM [Concomitant]
     Indication: THYROIDECTOMY
  3. HUMIRA [Suspect]
     Indication: COLITIS ULCERATIVE
     Route: 058
     Dates: start: 20120503
  4. HUMIRA [Suspect]
     Indication: PSORIATIC ARTHROPATHY
     Dates: start: 20100501, end: 20120201
  5. LORCET-HD [Concomitant]
     Indication: PAIN

REACTIONS (6)
  - FUNGAL INFECTION [None]
  - OEDEMA MOUTH [None]
  - TOOTH INFECTION [None]
  - OSTEOMYELITIS [None]
  - CONCUSSION [None]
  - INJECTION SITE PAIN [None]
